FAERS Safety Report 6106076-8 (Version None)
Quarter: 2009Q1

REPORT INFORMATION
  Report Type: 
  Country: None (occurrence: None)
  Receive Date: 20090306
  Receipt Date: 20090224
  Transmission Date: 20090719
  Serious: Yes (Death, Life-Threatening)
  Sender: FDA-Public Use
  Company Number: FR-WYE-H08375709

PATIENT
  Sex: Male

DRUGS (4)
  1. INIPOMP [Suspect]
     Route: 048
     Dates: start: 20081030
  2. OMNIPAQUE ^ADCOCK INGRAM^ [Suspect]
     Indication: SCAN WITH CONTRAST
     Dosage: 100 ML EVERY 1 TOT
     Route: 042
     Dates: start: 20081106, end: 20081106
  3. ATROVENT [Suspect]
     Dosage: UNKNOWN
     Route: 055
  4. CLAMOXYL [Suspect]
     Dosage: 1000 MG, FREQUENCY UNKNOWN
     Route: 048
     Dates: start: 20081104

REACTIONS (7)
  - CARDIO-RESPIRATORY ARREST [None]
  - CONVULSION [None]
  - CYANOSIS [None]
  - LOSS OF CONSCIOUSNESS [None]
  - MALAISE [None]
  - MULTI-ORGAN FAILURE [None]
  - PARAESTHESIA ORAL [None]
